FAERS Safety Report 9496274 (Version 5)
Quarter: 2014Q1

REPORT INFORMATION
  Report Type: Spontaneous
  Country: ZA (occurrence: None)
  Receive Date: 20130829
  Receipt Date: 20140312
  Transmission Date: 20141002
  Serious: Yes (Death, Other)
  Sender: FDA-Public Use
  Company Number: BTG00080

PATIENT
  Age: 59 Year
  Sex: Male
  Weight: 82.2 kg

DRUGS (4)
  1. VORAXAZE [Suspect]
     Indication: TOXICITY TO VARIOUS AGENTS
     Dosage: 4 VIALS, INTRAVENOUS
     Route: 042
     Dates: start: 20130614, end: 20130614
  2. METHOTREXATE (M ETHOTREXATE SODIUM) [Concomitant]
  3. CYTARABINE (CYTARABINE) [Concomitant]
  4. DEXAMETHASONE (DEXAMETHASONE SODIUM SUCCINATE) [Concomitant]

REACTIONS (5)
  - Renal failure acute [None]
  - Toxicity to various agents [None]
  - Drug ineffective [None]
  - Drug effect incomplete [None]
  - Haemodialysis [None]
